FAERS Safety Report 15681501 (Version 8)
Quarter: 2020Q2

REPORT INFORMATION
  Report Type: Report from Study
  Country: CN (occurrence: CN)
  Receive Date: 20181203
  Receipt Date: 20200427
  Transmission Date: 20200713
  Serious: Yes (Death, Other)
  Sender: FDA-Public Use
  Company Number: CN-ROCHE-2222398

PATIENT
  Age: 54 Year
  Sex: Male
  Weight: 67 kg

DRUGS (30)
  1. CARBAZOCHROME SODIUM SULFONATE [Concomitant]
     Active Substance: CARBAZOCHROME SODIUM SULFONATE
     Route: 042
     Dates: start: 20181216, end: 20181224
  2. AMINO ACIDS NOS [Concomitant]
     Active Substance: AMINO ACIDS, SOURCE UNSPECIFIED
     Route: 042
     Dates: start: 20181229, end: 20181229
  3. COMPOUND PLATYCODON [Concomitant]
     Route: 048
     Dates: start: 20181219, end: 20181219
  4. INDOMETACIN [Concomitant]
     Active Substance: INDOMETHACIN
     Route: 054
     Dates: start: 20190126, end: 20190126
  5. MEROPENEM. [Concomitant]
     Active Substance: MEROPENEM
     Indication: PYREXIA
     Route: 042
     Dates: start: 20190124, end: 20190129
  6. CARBAZOCHROME [Concomitant]
     Active Substance: CARBAZOCHROME
     Route: 048
     Dates: start: 20181224, end: 20190217
  7. ETAMSYLATE [Concomitant]
     Active Substance: ETHAMSYLATE
     Indication: HAEMOPTYSIS
     Route: 042
     Dates: start: 20181229, end: 20190103
  8. PARACETAMOL [Concomitant]
     Active Substance: ACETAMINOPHEN
     Indication: PYREXIA
     Route: 048
     Dates: start: 20190123, end: 20190123
  9. CEFMINOX SODIUM [Concomitant]
     Active Substance: CEFMINOX SODIUM
     Indication: PYREXIA
     Route: 042
     Dates: start: 20190124, end: 20190124
  10. DEXAMETHASONE ACETATE [Concomitant]
     Active Substance: DEXAMETHASONE ACETATE
     Indication: PYREXIA
     Route: 048
     Dates: start: 20181116, end: 20181116
  11. DEXAMETHASONE ACETATE [Concomitant]
     Active Substance: DEXAMETHASONE ACETATE
     Route: 048
     Dates: start: 20181110, end: 20181110
  12. CARBAZOCHROME [Concomitant]
     Active Substance: CARBAZOCHROME
     Indication: PROPHYLAXIS
     Route: 048
     Dates: end: 20181106
  13. ACETAMINOPHEN. [Concomitant]
     Active Substance: ACETAMINOPHEN
     Route: 048
     Dates: start: 20181031
  14. ATEZOLIZUMAB. [Suspect]
     Active Substance: ATEZOLIZUMAB
     Indication: NON-SMALL CELL LUNG CANCER
     Dosage: MOST RECENT DOSE OF ATEZOLIZUMAB 1200 MG, PRIOR TO ONSET OF NEPHRITIS ON 23/NOV/2018 AT 11:50.
     Route: 042
     Dates: start: 20181031
  15. LOXOPROFEN [Concomitant]
     Active Substance: LOXOPROFEN
     Route: 048
     Dates: start: 20181031, end: 20181106
  16. POSTERIOR PITUITARY INJECTION [Concomitant]
     Route: 042
     Dates: start: 20181216, end: 20181216
  17. OMEPRAZOLE SODIUM [Concomitant]
     Active Substance: OMEPRAZOLE SODIUM
     Route: 042
     Dates: start: 20190128, end: 20190129
  18. VITAMIN B6 [Concomitant]
     Active Substance: PYRIDOXINE HYDROCHLORIDE
     Route: 042
     Dates: start: 20181229, end: 20181229
  19. ESTAZOLAM. [Concomitant]
     Active Substance: ESTAZOLAM
     Indication: INSOMNIA
     Route: 048
     Dates: start: 20181213, end: 20181213
  20. INDOMETACIN [Concomitant]
     Active Substance: INDOMETHACIN
     Indication: PYREXIA
     Route: 054
     Dates: start: 20190123, end: 20190123
  21. OMEPRAZOLE SODIUM [Concomitant]
     Active Substance: OMEPRAZOLE SODIUM
     Indication: PROPHYLAXIS
     Route: 042
     Dates: start: 20181229, end: 20190103
  22. INDOMETACIN [Concomitant]
     Active Substance: INDOMETHACIN
     Route: 054
     Dates: start: 20190128, end: 20190128
  23. CARBAZOCHROME [Concomitant]
     Active Substance: CARBAZOCHROME
     Route: 042
     Dates: start: 20181129, end: 20181130
  24. COMPOUND CODEINE PHOSPHATE [Concomitant]
     Route: 048
     Dates: start: 20181220
  25. COMPOUND PLATYCODON [Concomitant]
     Route: 048
     Dates: start: 20181215, end: 20181216
  26. CEFMINOX SODIUM [Concomitant]
     Active Substance: CEFMINOX SODIUM
     Route: 042
     Dates: start: 20190124, end: 20190124
  27. POSTERIOR PITUITARY INJECTION [Concomitant]
     Route: 042
     Dates: start: 20181216, end: 20181216
  28. NIFEDIPINE. [Concomitant]
     Active Substance: NIFEDIPINE
     Route: 048
     Dates: start: 20181110
  29. OMEPRAZOLE. [Concomitant]
     Active Substance: OMEPRAZOLE
     Route: 048
     Dates: start: 20181212, end: 20190217
  30. DEXAMETHASONE ACETATE [Concomitant]
     Active Substance: DEXAMETHASONE ACETATE
     Route: 048
     Dates: start: 20181117, end: 20181117

REACTIONS (1)
  - Nephritis [Not Recovered/Not Resolved]

NARRATIVE: CASE EVENT DATE: 20181126
